FAERS Safety Report 20189626 (Version 4)
Quarter: 2022Q4

REPORT INFORMATION
  Report Type: Report from Study
  Country: US (occurrence: US)
  Receive Date: 20211215
  Receipt Date: 20221017
  Transmission Date: 20230113
  Serious: Yes (Hospitalization, Other)
  Sender: FDA-Public Use
  Company Number: US-TAKEDA-2021TUS077735

PATIENT
  Age: 40 Year
  Sex: Female

DRUGS (1)
  1. HUMAN IMMUNOGLOBULIN G [Suspect]
     Active Substance: HUMAN IMMUNOGLOBULIN G
     Indication: Primary immunodeficiency syndrome
     Dosage: UNK
     Route: 058

REACTIONS (10)
  - Bronchitis [Recovering/Resolving]
  - Viral infection [Recovering/Resolving]
  - Respiratory disorder [Not Recovered/Not Resolved]
  - Inflammation [Not Recovered/Not Resolved]
  - Illness [Not Recovered/Not Resolved]
  - Pulmonary thrombosis [Recovering/Resolving]
  - Respiratory tract infection [Not Recovered/Not Resolved]
  - Cystitis [Not Recovered/Not Resolved]
  - Eye infection [Not Recovered/Not Resolved]
  - Mastitis [Not Recovered/Not Resolved]

NARRATIVE: CASE EVENT DATE: 20220201
